FAERS Safety Report 15793717 (Version 3)
Quarter: 2019Q1

REPORT INFORMATION
  Report Type: Spontaneous
  Country: US (occurrence: US)
  Receive Date: 20190107
  Receipt Date: 20190315
  Transmission Date: 20190417
  Serious: No
  Sender: FDA-Public Use
  Company Number: US-INCYTE CORPORATION-2018IN000992

PATIENT

DRUGS (1)
  1. JAKAFI [Suspect]
     Active Substance: RUXOLITINIB
     Indication: MYELOFIBROSIS
     Dosage: 5 MG, QD ALTERNATING WITH 5 MG, BID
     Route: 048
     Dates: start: 20170615

REACTIONS (7)
  - Rash macular [Unknown]
  - Epistaxis [Unknown]
  - Platelet count decreased [Unknown]
  - Weight increased [Unknown]
  - Blood count abnormal [Unknown]
  - Red blood cell count decreased [Unknown]
  - Inappropriate schedule of product administration [Unknown]

NARRATIVE: CASE EVENT DATE: 20170615
